FAERS Safety Report 8573546-2 (Version None)
Quarter: 2012Q2

REPORT INFORMATION
  Report Type: 
  Country: None (occurrence: None)
  Receive Date: 20120423
  Receipt Date: 20090922
  Transmission Date: 20120825
  Serious: Yes (Death)
  Sender: FDA-Public Use
  Company Number: PHEH2009US11263

PATIENT
  Age: 58 Year
  Sex: Male

DRUGS (5)
  1. NEUPOGEN [Concomitant]
  2. CALCIUM CARBONATE [Concomitant]
  3. EXJADE [Suspect]
     Indication: IRON OVERLOAD
     Dosage: 2500 MG, QD, ORAL
     Route: 048
     Dates: start: 20060201, end: 20090601
  4. GLIPIZIDE [Concomitant]
  5. PROTONIX [Concomitant]

REACTIONS (1)
  - DISEASE PROGRESSION [None]
